FAERS Safety Report 9122436 (Version 1)
Quarter: 2013Q1

REPORT INFORMATION
  Report Type: Report from Study
  Country: US (occurrence: US)
  Receive Date: 20130114
  Receipt Date: 20130114
  Transmission Date: 20140127
  Serious: Yes (Hospitalization)
  Sender: FDA-Public Use
  Company Number: US-SANOFI-AVENTIS-2013SA000814

PATIENT
  Age: 68 Year
  Sex: Male

DRUGS (10)
  1. DIABETA [Suspect]
     Route: 048
  2. PREDNISONE [Suspect]
     Indication: PROSTATE CANCER
     Route: 048
  3. ASPIRIN [Suspect]
     Route: 048
  4. ATORVASTATIN CALCIUM [Suspect]
     Route: 048
  5. BENICAR [Suspect]
     Route: 048
  6. NEBIVOLOL [Suspect]
     Route: 048
  7. IMDUR [Suspect]
     Route: 048
  8. METHADONE HYDROCHLORIDE [Suspect]
     Route: 048
  9. GLYCERYL TRINITRATE [Suspect]
     Route: 060
  10. ANALGESICS [Suspect]
     Route: 048

REACTIONS (1)
  - Muscular weakness [Recovered/Resolved]
